FAERS Safety Report 10014321 (Version 1)
Quarter: 2014Q1

REPORT INFORMATION
  Report Type: Spontaneous
  Country: US (occurrence: US)
  Receive Date: 20140317
  Receipt Date: 20140317
  Transmission Date: 20141002
  Serious: No
  Sender: FDA-Public Use
  Company Number: US-BIOGENIDEC-2014BI021822

PATIENT
  Age: 50 Year
  Sex: Female

DRUGS (2)
  1. TECFIDERA [Suspect]
     Indication: MULTIPLE SCLEROSIS
     Route: 048
     Dates: start: 20131225, end: 20140131
  2. TECFIDERA [Suspect]
     Indication: MULTIPLE SCLEROSIS
     Dates: start: 20140201

REACTIONS (5)
  - Underdose [Unknown]
  - Musculoskeletal pain [Not Recovered/Not Resolved]
  - Neck pain [Not Recovered/Not Resolved]
  - Diarrhoea [Not Recovered/Not Resolved]
  - Pruritus [Not Recovered/Not Resolved]
